FAERS Safety Report 11167427 (Version 1)
Quarter: 2015Q2

REPORT INFORMATION
  Report Type: Spontaneous
  Country: US (occurrence: US)
  Receive Date: 20150605
  Receipt Date: 20150605
  Transmission Date: 20150821
  Serious: Yes (Hospitalization)
  Sender: FDA-Public Use
  Company Number: US-EMD SERONO-238766J08USA

PATIENT
  Age: 37 Year
  Sex: Female
  Weight: 61 kg

DRUGS (5)
  1. REBIF [Suspect]
     Active Substance: INTERFERON BETA-1A
     Indication: MULTIPLE SCLEROSIS
     Route: 058
     Dates: start: 20080613
  2. ROBAXIN [Concomitant]
     Active Substance: METHOCARBAMOL
     Indication: MUSCLE SPASMS
  3. VICODIN [Concomitant]
     Active Substance: ACETAMINOPHEN\HYDROCODONE BITARTRATE
     Indication: PAIN
     Route: 065
  4. REBIF [Suspect]
     Active Substance: INTERFERON BETA-1A
     Route: 058
     Dates: end: 2011
  5. NEURONTIN [Concomitant]
     Active Substance: GABAPENTIN
     Indication: PAIN

REACTIONS (6)
  - Blood thyroid stimulating hormone increased [Not Recovered/Not Resolved]
  - Thyroid mass [Unknown]
  - Pancreatitis [Not Recovered/Not Resolved]
  - Diverticulitis [Not Recovered/Not Resolved]
  - Parathyroid disorder [Recovered/Resolved]
  - Weight decreased [Unknown]

NARRATIVE: CASE EVENT DATE: 200808
